FAERS Safety Report 6115892-8 (Version None)
Quarter: 2009Q1

REPORT INFORMATION
  Report Type: 
  Country: None (occurrence: None)
  Receive Date: 20090311
  Receipt Date: 20090225
  Transmission Date: 20090719
  Serious: Yes (Other)
  Sender: FDA-Public Use
  Company Number: US-1168775

PATIENT
  Age: 55 Year
  Sex: Male

DRUGS (1)
  1. ATROPINE [Suspect]
     Dosage: (OPHTHALMIC)
     Route: 047

REACTIONS (1)
  - ANGLE CLOSURE GLAUCOMA [None]
